FAERS Safety Report 11064643 (Version 1)
Quarter: 2015Q2

REPORT INFORMATION
  Report Type: Report from Study
  Country: US (occurrence: US)
  Receive Date: 20150424
  Receipt Date: 20150424
  Transmission Date: 20150821
  Serious: Yes (Hospitalization, Other)
  Sender: FDA-Public Use
  Company Number: US-BAXTER-2015BAX021852

PATIENT
  Sex: Female

DRUGS (1)
  1. GAMMAGARD LIQUID [Suspect]
     Active Substance: HUMAN IMMUNOGLOBULIN G
     Indication: PRODUCT USED FOR UNKNOWN INDICATION
     Route: 042

REACTIONS (6)
  - Kidney infection [Recovering/Resolving]
  - Sepsis [Recovering/Resolving]
  - Thrombosis [Recovering/Resolving]
  - Cystitis [Recovering/Resolving]
  - Influenza [Recovering/Resolving]
  - Infusion site haemorrhage [Recovering/Resolving]
